FAERS Safety Report 13939824 (Version 1)
Quarter: 2017Q3

REPORT INFORMATION
  Report Type: Spontaneous
  Country: FR (occurrence: FR)
  Receive Date: 20170906
  Receipt Date: 20170906
  Transmission Date: 20171127
  Serious: Yes (Hospitalization)
  Sender: FDA-Public Use
  Company Number: FR-ROCHE-1986250

PATIENT
  Age: 44 Year
  Sex: Female

DRUGS (1)
  1. ROCEPHINE [Suspect]
     Active Substance: CEFTRIAXONE SODIUM
     Indication: PYELONEPHRITIS
     Route: 042
     Dates: start: 20170802, end: 20170812

REACTIONS (4)
  - Oropharyngeal blistering [Recovering/Resolving]
  - Purpura [Recovering/Resolving]
  - Haematuria [Recovering/Resolving]
  - Thrombocytopenia [Recovering/Resolving]

NARRATIVE: CASE EVENT DATE: 20170812
